FAERS Safety Report 9948406 (Version 1)
Quarter: 2014Q1

REPORT INFORMATION
  Report Type: Report from Study
  Country: US (occurrence: US)
  Receive Date: 20140303
  Receipt Date: 20140303
  Transmission Date: 20141002
  Serious: No
  Sender: FDA-Public Use
  Company Number: US-ABBVIE-13P-163-1057199-00

PATIENT
  Age: 48 Year
  Sex: Female

DRUGS (1)
  1. HUMIRA [Suspect]
     Indication: RHEUMATOID ARTHRITIS
     Dates: start: 20130104, end: 20130219

REACTIONS (8)
  - Palpitations [Recovered/Resolved]
  - Dermatitis allergic [Recovered/Resolved]
  - Blood pressure increased [Unknown]
  - Insomnia [Unknown]
  - Flushing [Recovered/Resolved]
  - Rash [Recovered/Resolved]
  - Rash [Recovered/Resolved]
  - Paraesthesia [Recovered/Resolved]
